FAERS Safety Report 4742459-6 (Version None)
Quarter: 2005Q3

REPORT INFORMATION
  Report Type: 
  Country: None (occurrence: None)
  Receive Date: 20050811
  Receipt Date: 20050808
  Transmission Date: 20060218
  Serious: Yes (Other)
  Sender: FDA-Public Use
  Company Number: GB-SP-2005-01515

PATIENT
  Age: 70 Year
  Sex: Male
  Weight: 64 kg

DRUGS (1)
  1. IMMUCYST [Suspect]
     Indication: BLADDER CANCER
     Dosage: 81 MG/WEEK
     Route: 043
     Dates: start: 20050622, end: 20050713

REACTIONS (3)
  - CHILLS [None]
  - MALAISE [None]
  - PYREXIA [None]
